FAERS Safety Report 19606411 (Version 1)
Quarter: 2021Q3

REPORT INFORMATION
  Report Type: Spontaneous
  Country: US (occurrence: US)
  Receive Date: 20210725
  Receipt Date: 20210725
  Transmission Date: 20211014
  Serious: No
  Sender: FDA-Public Use
  Company Number: US-AMGEN-USASP2021111728

PATIENT
  Age: 22 Year
  Sex: Male

DRUGS (2)
  1. MELOXICAM. [Concomitant]
     Active Substance: MELOXICAM
     Dosage: UNK
  2. OTEZLA [Suspect]
     Active Substance: APREMILAST
     Indication: PSORIATIC ARTHROPATHY
     Dosage: 10/20/30 STARTER PACK
     Route: 048

REACTIONS (2)
  - Abdominal pain upper [Unknown]
  - Diarrhoea [Unknown]
